FAERS Safety Report 7036675-0 (Version None)
Quarter: 2010Q4

REPORT INFORMATION
  Report Type: 
  Country: None (occurrence: None)
  Receive Date: 20101011
  Receipt Date: 20100929
  Transmission Date: 20110411
  Serious: No
  Sender: FDA-Public Use
  Company Number: US-BIOGENIDEC-2010BI034623

PATIENT
  Sex: Male

DRUGS (1)
  1. TYSABRI [Suspect]
     Indication: MULTIPLE SCLEROSIS
     Route: 042
     Dates: start: 20080922

REACTIONS (9)
  - BALANCE DISORDER [None]
  - DYSPNOEA [None]
  - FALL [None]
  - JOINT HYPEREXTENSION [None]
  - NASAL CONGESTION [None]
  - NASOPHARYNGITIS [None]
  - PAIN [None]
  - PYREXIA [None]
  - TEMPERATURE INTOLERANCE [None]
